FAERS Safety Report 4678232-7 (Version None)
Quarter: 2005Q2

REPORT INFORMATION
  Report Type: 
  Country: None (occurrence: None)
  Receive Date: 20050527
  Receipt Date: 20050516
  Transmission Date: 20051028
  Serious: Yes (Hospitalization, Disabling)
  Sender: FDA-Public Use
  Company Number: 2005075840

PATIENT
  Age: 35 Year
  Sex: Male

DRUGS (25)
  1. LITHIUM (LITHIUM) [Suspect]
     Indication: BIPOLAR DISORDER
     Dosage: 2200 MG, ORAL
     Route: 048
  2. BEXTRA [Suspect]
     Indication: ARTHRITIS
     Dosage: ORAL
     Route: 048
     Dates: start: 20030101
  3. IBUPROFEN [Suspect]
     Indication: PAIN
     Dosage: ORAL
     Route: 048
  4. VIOXX [Suspect]
     Indication: ILL-DEFINED DISORDER
     Dosage: ORAL
     Route: 048
     Dates: end: 20030101
  5. PHAZYME (DIASTASE, PANCREATIN, PEPSIN, SIMETICONE) [Suspect]
     Indication: FLATULENCE
     Dosage: ORAL
     Route: 048
     Dates: start: 20000101
  6. MULTI-VITAMINS [Concomitant]
  7. ASCORBIC ACID [Concomitant]
  8. ACIDOPHILUS (LACTOBACILLUS ADICOPHILUS) [Concomitant]
  9. GARLIC [Concomitant]
  10. VITAMIN E [Concomitant]
  11. NEURONTIN [Concomitant]
  12. CELEBREX [Concomitant]
  13. PRILOSEC [Concomitant]
  14. MONTELUKAST SODIUM [Concomitant]
  15. CLARITIN [Concomitant]
  16. IMITREX [Concomitant]
  17. BUSPAR [Concomitant]
  18. ALL OTHER THERAPEUTIC PRODUCTS [Concomitant]
  19. COLACE (DOCUSATE SODIUM) [Concomitant]
  20. EFFEXOR [Concomitant]
  21. PULMICORT (BUDENOSIDE) [Concomitant]
  22. ALBUTEROL [Concomitant]
  23. SEREVENT [Concomitant]
  24. ATROVENT [Concomitant]
  25. ASPIRIN [Concomitant]

REACTIONS (11)
  - ACTIVITIES OF DAILY LIVING IMPAIRED [None]
  - AMNESIA [None]
  - CEREBROVASCULAR ACCIDENT [None]
  - COMA [None]
  - DIALYSIS [None]
  - DIFFICULTY IN WALKING [None]
  - HALLUCINATION [None]
  - HEMIPLEGIA [None]
  - INFLUENZA [None]
  - RENAL FAILURE [None]
  - SPEECH DISORDER [None]
